FAERS Safety Report 24225543 (Version 1)
Quarter: 2024Q3

REPORT INFORMATION
  Report Type: Spontaneous
  Country: PT (occurrence: PT)
  Receive Date: 20240820
  Receipt Date: 20240820
  Transmission Date: 20241016
  Serious: Yes (Other)
  Sender: TEVA
  Company Number: None

PATIENT
  Age: 58 Year
  Sex: Male
  Weight: 80 kg

DRUGS (1)
  1. IBUPROFEN [Suspect]
     Active Substance: IBUPROFEN
     Indication: Odynophagia
     Route: 048
     Dates: start: 20240729, end: 20240730

REACTIONS (1)
  - Face oedema [Recovering/Resolving]

NARRATIVE: CASE EVENT DATE: 20240730
